FAERS Safety Report 5954127-3 (Version None)
Quarter: 2008Q4

REPORT INFORMATION
  Report Type: 
  Country: None (occurrence: None)
  Receive Date: 20081113
  Receipt Date: 20081113
  Transmission Date: 20090506
  Serious: Yes (Life-Threatening, Hospitalization, Other)
  Sender: FDA-Public Use
  Company Number: None

PATIENT
  Age: 72 Year
  Sex: Female
  Weight: 86.1834 kg

DRUGS (2)
  1. PULMICORT [Suspect]
     Indication: ASTHMA
     Dosage: PULMICORT 2 PUFFS 3X DAY ORAL
     Route: 048
     Dates: start: 20071101
  2. ALBUTEROL [Suspect]
     Dosage: ALBUTEROL 2 PUFFS 3X DAY ORAL
     Route: 048
     Dates: start: 20071101

REACTIONS (3)
  - PNEUMONIA [None]
  - THERAPEUTIC RESPONSE UNEXPECTED [None]
  - UNEMPLOYMENT [None]
